FAERS Safety Report 8294580-6 (Version None)
Quarter: 2012Q2

REPORT INFORMATION
  Report Type: 
  Country: None (occurrence: None)
  Receive Date: 20120418
  Receipt Date: 20120416
  Transmission Date: 20120825
  Serious: No
  Sender: FDA-Public Use
  Company Number: US-TEVA-333634USA

PATIENT
  Sex: Male

DRUGS (1)
  1. PROAIR HFA [Suspect]
     Indication: COUGH
     Dosage: 2 PUFFS
     Route: 055

REACTIONS (2)
  - OESOPHAGEAL DISCOMFORT [None]
  - DYSPNOEA [None]
